FAERS Safety Report 25289650 (Version 2)
Quarter: 2025Q2

REPORT INFORMATION
  Report Type: Spontaneous
  Country: US (occurrence: US)
  Receive Date: 20250509
  Receipt Date: 20250612
  Transmission Date: 20250717
  Serious: No
  Sender: GLAUKOS
  Company Number: US-GLK-000635

PATIENT
  Age: 33 Year
  Sex: Male

DRUGS (2)
  1. PHOTREXA VISCOUS [Suspect]
     Active Substance: RIBOFLAVIN 5^-PHOSPHATE SODIUM
     Indication: Product used for unknown indication
     Route: 047
     Dates: start: 20250417, end: 20250417
  2. PHOTREXA [Suspect]
     Active Substance: RIBOFLAVIN 5^-PHOSPHATE SODIUM
     Indication: Product used for unknown indication
     Route: 047
     Dates: start: 20250417, end: 20250417

REACTIONS (2)
  - Therapeutic response decreased [Recovering/Resolving]
  - Corneal opacity [Unknown]

NARRATIVE: CASE EVENT DATE: 20250417
